FAERS Safety Report 19945819 (Version 2)
Quarter: 2021Q4

REPORT INFORMATION
  Report Type: Spontaneous
  Country: DE (occurrence: DE)
  Receive Date: 20211012
  Receipt Date: 20211025
  Transmission Date: 20220303
  Serious: Yes (Other)
  Sender: FDA-Public Use
  Company Number: None

PATIENT
  Sex: Male

DRUGS (9)
  1. PANTOPRAZOLE [Interacting]
     Active Substance: PANTOPRAZOLE
     Indication: Gastrooesophageal reflux prophylaxis
     Dosage: UNK
  2. PANTOPRAZOLE [Interacting]
     Active Substance: PANTOPRAZOLE
     Indication: Prophylaxis
  3. PANTOPRAZOLE SODIUM [Interacting]
     Active Substance: PANTOPRAZOLE SODIUM
     Indication: Gastrooesophageal reflux prophylaxis
     Dosage: UNK
  4. PANTOPRAZOLE SODIUM [Interacting]
     Active Substance: PANTOPRAZOLE SODIUM
     Indication: Prophylaxis
  5. THIAMINE HYDROCHLORIDE [Interacting]
     Active Substance: THIAMINE HYDROCHLORIDE
     Indication: Muscle discomfort
     Dosage: 200 MILLIGRAM, QD (WIRD SEIT EINIGER ZEIT EINGENOMMEN)
     Route: 065
  6. THIAMINE HYDROCHLORIDE [Interacting]
     Active Substance: THIAMINE HYDROCHLORIDE
     Dosage: 50 MILLIGRAM, QD
  7. PANTOPRAZOLE SODIUM [Interacting]
     Active Substance: PANTOPRAZOLE SODIUM
     Indication: Gastrooesophageal reflux prophylaxis
     Dosage: UNK
  8. PANTOPRAZOLE SODIUM [Interacting]
     Active Substance: PANTOPRAZOLE SODIUM
     Indication: Prophylaxis
  9. CORTISONE ACETATE [Concomitant]
     Active Substance: CORTISONE ACETATE
     Indication: Polymyalgia rheumatica
     Dosage: UNK

REACTIONS (8)
  - Arthropathy [Unknown]
  - Mobility decreased [Unknown]
  - Muscle atrophy [Unknown]
  - Tendon rupture [Unknown]
  - Muscle strength abnormal [Unknown]
  - Vitamin B1 deficiency [Unknown]
  - Malabsorption [Unknown]
  - Drug interaction [Unknown]

NARRATIVE: CASE EVENT DATE: 20180101
